FAERS Safety Report 4667467-5 (Version None)
Quarter: 2005Q2

REPORT INFORMATION
  Report Type: 
  Country: None (occurrence: None)
  Receive Date: 20050520
  Receipt Date: 20050512
  Transmission Date: 20051028
  Serious: Yes (Other)
  Sender: FDA-Public Use
  Company Number: BR-BOEHRINGER INGELHEIM PHARMACEUTICALS, INC.-2005-BP-07948BR

PATIENT
  Age: 76 Year
  Sex: Female

DRUGS (1)
  1. ATENSINA [Suspect]
     Indication: HYPERTENSION
     Route: 048
     Dates: start: 20041001, end: 20050511

REACTIONS (1)
  - THERAPEUTIC RESPONSE DECREASED [None]
